FAERS Safety Report 9003726 (Version 1)
Quarter: 2013Q1

REPORT INFORMATION
  Report Type: Spontaneous
  Country: US (occurrence: US)
  Receive Date: 20130108
  Receipt Date: 20130108
  Transmission Date: 20140127
  Serious: No
  Sender: FDA-Public Use
  Company Number: US-GLAXOSMITHKLINE-A0968610A

PATIENT
  Age: 51 Year
  Sex: Female

DRUGS (5)
  1. LOVAZA [Suspect]
     Indication: BLOOD CHOLESTEROL INCREASED
     Dosage: 2CAP TWICE PER DAY
     Route: 048
     Dates: start: 201103
  2. PRAZOSIN [Concomitant]
  3. PAMELOR [Concomitant]
  4. CITALOPRAM [Concomitant]
  5. ACYCLOVIR [Concomitant]

REACTIONS (3)
  - Nausea [Recovered/Resolved]
  - Eructation [Unknown]
  - Product quality issue [Unknown]
